FAERS Safety Report 14923533 (Version 1)
Quarter: 2018Q2

REPORT INFORMATION
  Report Type: Spontaneous
  Country: DE (occurrence: DE)
  Receive Date: 20180522
  Receipt Date: 20180522
  Transmission Date: 20180711
  Serious: Yes (Hospitalization)
  Sender: FDA-Public Use
  Company Number: DE-PFIZER INC-2018203974

PATIENT
  Age: 71 Year
  Sex: Female

DRUGS (6)
  1. LOPERAMID [Concomitant]
     Active Substance: LOPERAMIDE
     Dosage: 2 MG, 1-1-1-1
  2. TORASEMID [Concomitant]
     Active Substance: TORSEMIDE
     Dosage: 10 MG, 1-1-0-0
  3. ENOXAPARIN [Concomitant]
     Active Substance: ENOXAPARIN
     Dosage: 0.5 MG, 1-0-1-0
  4. PACLITAXEL. [Suspect]
     Active Substance: PACLITAXEL
     Dosage: NK
  5. HYDROCHLOROTHIAZID [Concomitant]
     Active Substance: HYDROCHLOROTHIAZIDE
     Dosage: 25 MG, 0.5-0-0-0
  6. KALINOR-BRAUSETABLETTEN [Concomitant]
     Active Substance: POTASSIUM CARBONATE\POTASSIUM CITRATE
     Dosage: 1-0-1-0

REACTIONS (5)
  - Fatigue [Unknown]
  - General physical health deterioration [Unknown]
  - Disorientation [Unknown]
  - Pyrexia [Unknown]
  - Asthenia [Unknown]
